FAERS Safety Report 24788835 (Version 2)
Quarter: 2025Q1

REPORT INFORMATION
  Report Type: Report from Study
  Country: CA (occurrence: CA)
  Receive Date: 20241230
  Receipt Date: 20250128
  Transmission Date: 20250408
  Serious: Yes (Other)
  Sender: BAYER HEALTHCARE PHARMACEUTICALS INC.
  Company Number: CA-BAYER-2024A179717

PATIENT
  Sex: Male

DRUGS (2)
  1. NUBEQA [Suspect]
     Active Substance: DAROLUTAMIDE
     Indication: Hormone-dependent prostate cancer
     Dosage: 600 MG, BID
     Dates: start: 20241129
  2. DOCETAXEL [Concomitant]
     Active Substance: DOCETAXEL

REACTIONS (3)
  - Blood creatinine increased [None]
  - Blood testosterone increased [Not Recovered/Not Resolved]
  - Blood pressure increased [Unknown]
